FAERS Safety Report 5082285-4 (Version None)
Quarter: 2006Q3

REPORT INFORMATION
  Report Type: 
  Country: None (occurrence: None)
  Receive Date: 20060814
  Receipt Date: 20060801
  Transmission Date: 20061208
  Serious: Yes (Disabling)
  Sender: FDA-Public Use
  Company Number: HQWYE733511JUL06

PATIENT
  Age: 47 Year
  Sex: Female
  Weight: 79.45 kg

DRUGS (7)
  1. EFFEXOR XR [Suspect]
     Indication: DEPRESSION
     Dosage: SEE IMAGE
     Route: 048
     Dates: start: 20051101, end: 20060101
  2. EFFEXOR XR [Suspect]
     Indication: DEPRESSION
     Dosage: SEE IMAGE
     Route: 048
     Dates: start: 20060101, end: 20060501
  3. EFFEXOR XR [Suspect]
     Indication: DEPRESSION
     Dosage: SEE IMAGE
     Route: 048
     Dates: start: 20060501, end: 20060604
  4. EFFEXOR XR [Suspect]
     Indication: DEPRESSION
     Dosage: SEE IMAGE
     Route: 048
     Dates: start: 20060601, end: 20060625
  5. AMBIEN [Concomitant]
  6. PROTONIX [Concomitant]
  7. MIDRIN (DICHLORALPHENAZONE/ISOMETHEPTENE/PARACETAMOL) [Concomitant]

REACTIONS (13)
  - ACTIVITIES OF DAILY LIVING IMPAIRED [None]
  - BRUXISM [None]
  - DIZZINESS [None]
  - DRUG WITHDRAWAL SYNDROME [None]
  - FATIGUE [None]
  - FEELING ABNORMAL [None]
  - IMPAIRED DRIVING ABILITY [None]
  - IMPAIRED WORK ABILITY [None]
  - MALAISE [None]
  - MOTION SICKNESS [None]
  - NAUSEA [None]
  - VAGINAL INFECTION [None]
  - VISION BLURRED [None]
